FAERS Safety Report 4854884-3 (Version None)
Quarter: 2005Q4

REPORT INFORMATION
  Report Type: 
  Country: None (occurrence: None)
  Receive Date: 20051213
  Receipt Date: 20051202
  Transmission Date: 20060501
  Serious: No
  Sender: FDA-Public Use
  Company Number: J081-002-002103

PATIENT
  Age: 76 Year
  Sex: Female
  Weight: 45 kg

DRUGS (6)
  1. ARICEPT [Suspect]
     Indication: DEMENTIA ALZHEIMER'S TYPE
     Dosage: SEE  IMAGE
     Route: 048
     Dates: start: 20040817, end: 20050830
  2. ARICEPT [Suspect]
     Indication: DEMENTIA ALZHEIMER'S TYPE
     Dosage: SEE  IMAGE
     Route: 048
     Dates: start: 20050831, end: 20051014
  3. LYSOZYME HYDROCHLORIDE (LYSOZYME HYDROCHLORIDE) [Suspect]
     Indication: NASOPHARYNGITIS
     Dosage: ORAL
     Route: 048
     Dates: start: 20051012, end: 20051014
  4. IBUPROFEN [Suspect]
     Indication: NASOPHARYNGITIS
     Dates: start: 20051012, end: 20051114
  5. NOLEPTAN (FOMINOBEN HYDROCHLORIDE) [Suspect]
     Indication: NASOPHARYNGITIS
     Dosage: ORAL
     Route: 048
     Dates: start: 20051012, end: 20051014
  6. NAUZELIN (DOMPERIDONE) [Concomitant]

REACTIONS (20)
  - ALANINE AMINOTRANSFERASE INCREASED [None]
  - ARTHRALGIA [None]
  - ASPARTATE AMINOTRANSFERASE INCREASED [None]
  - CONJUNCTIVAL HYPERAEMIA [None]
  - ERYTHEMA [None]
  - GAMMA-GLUTAMYLTRANSFERASE INCREASED [None]
  - INFLAMMATION [None]
  - LACRIMATION INCREASED [None]
  - LIVER DISORDER [None]
  - LYMPHOCYTE PERCENTAGE DECREASED [None]
  - LYMPHOCYTIC INFILTRATION [None]
  - MYALGIA [None]
  - NASOPHARYNGITIS [None]
  - NECK PAIN [None]
  - NEUTROPHIL PERCENTAGE INCREASED [None]
  - PURPURA [None]
  - PYREXIA [None]
  - RASH [None]
  - STEVENS-JOHNSON SYNDROME [None]
  - URTICARIA [None]
